FAERS Safety Report 5521089-2 (Version None)
Quarter: 2007Q4

REPORT INFORMATION
  Report Type: 
  Country: None (occurrence: None)
  Receive Date: 20071115
  Receipt Date: 20071107
  Transmission Date: 20080405
  Serious: Yes (Hospitalization, Other)
  Sender: FDA-Public Use
  Company Number: 2007SP018930

PATIENT
  Age: 54 Year
  Sex: Female
  Weight: 79.3795 kg

DRUGS (18)
  1. RIBAVIRIN [Suspect]
     Indication: HEPATITIS C
     Dosage: PO; 1000 MG;QD;PO
     Route: 048
     Dates: start: 20020101, end: 20020101
  2. RIBAVIRIN [Suspect]
     Indication: HEPATITIS C
     Dosage: PO; 1000 MG;QD;PO
     Route: 048
     Dates: start: 20070112, end: 20070320
  3. PEG-INTRON [Suspect]
     Indication: CHRONIC HEPATITIS
     Dosage: SC
     Route: 058
     Dates: start: 20020101, end: 20020101
  4. INFERGEN [Suspect]
     Indication: HEPATITIS C
     Dosage: 15 MCG; QD; SC
     Route: 058
     Dates: start: 20070112, end: 20070320
  5. ALBUTEROL (CON.) [Concomitant]
  6. OXYCONTIN (CON.) [Concomitant]
  7. VICODIN (CON.) [Concomitant]
  8. REMERON (CON.) [Concomitant]
  9. WELLBUTRIN XL (CON.) [Concomitant]
  10. RISPERDAL (CON.) [Concomitant]
  11. NEXIUM (CON.) [Concomitant]
  12. MEGACE ES (CON.) [Concomitant]
  13. RESTORIL (CON.) [Concomitant]
  14. AMBIEN CR (CON.) [Concomitant]
  15. ALTACE (CON.) [Concomitant]
  16. PROCARDIA XL (CON.) [Concomitant]
  17. VALIUM (CON.) [Concomitant]
  18. SYNTHROID (CON.) [Concomitant]

REACTIONS (11)
  - ANAEMIA [None]
  - CHEST PAIN [None]
  - DIZZINESS [None]
  - HYPERTENSION [None]
  - HYPOKALAEMIA [None]
  - NO THERAPEUTIC RESPONSE [None]
  - PANIC ATTACK [None]
  - PARAESTHESIA [None]
  - PSYCHOTIC DISORDER [None]
  - TACHYCARDIA [None]
  - TRANSIENT ISCHAEMIC ATTACK [None]
